FAERS Safety Report 8770779 (Version 2)
Quarter: 2012Q4

REPORT INFORMATION
  Report Type: 
  Country: US (occurrence: US)
  Receive Date: 20120906
  Receipt Date: 20120924
  Transmission Date: 20130627
  Serious: Yes (Other)
  Sender: FDA-Public Use
  Company Number: US-COVIDIEN/TYCO HEALTHCARE/MALLINCKRODT-T201203292

PATIENT
  Age: 85 Year
  Sex: Female

DRUGS (4)
  1. FENTANYL TRANSDERMAL SYSTEM [Suspect]
     Indication: PAIN
     Dosage: 25 ug/hr
     Dates: start: 201208, end: 20120823
  2. VALIUM                             /00017001/ [Suspect]
     Dosage: takes at bedtime
  3. OXYCONTIN [Concomitant]
     Indication: PAIN
     Dosage: UNK
     Dates: end: 2012
  4. ANTIHYPERTENSIVES [Concomitant]
     Dosage: UNK

REACTIONS (8)
  - Renal cancer [Unknown]
  - Confusional state [Recovered/Resolved]
  - Somnolence [Recovered/Resolved]
  - Restlessness [Recovered/Resolved]
  - Feeling jittery [Recovered/Resolved]
  - Trigeminal neuralgia [Recovered/Resolved]
  - Heart rate decreased [Recovered/Resolved]
  - Drug interaction [Unknown]
